FAERS Safety Report 7565814-8 (Version None)
Quarter: 2011Q2

REPORT INFORMATION
  Report Type: 
  Country: None (occurrence: None)
  Receive Date: 20110617
  Receipt Date: 20100422
  Transmission Date: 20111010
  Serious: Yes (Hospitalization)
  Sender: FDA-Public Use
  Company Number: 2010-1708

PATIENT
  Sex: Male

DRUGS (4)
  1. SINEMET [Concomitant]
  2. STALEVO (STALEVO) [Concomitant]
  3. APOKYN [Suspect]
     Indication: PARKINSON'S DISEASE
     Dosage: 1.5 MG (0.5 MG,3 IN 1 D) ; (0.5 MG,AS REQUIRED)
     Dates: end: 20100101
  4. MIRAPEX [Concomitant]

REACTIONS (1)
  - HALLUCINATION [None]
